FAERS Safety Report 5397323-9 (Version None)
Quarter: 2007Q3

REPORT INFORMATION
  Report Type: 
  Country: None (occurrence: None)
  Receive Date: 20070723
  Receipt Date: 20070705
  Transmission Date: 20080115
  Serious: Yes (Other)
  Sender: FDA-Public Use
  Company Number: 2007JP002799

PATIENT
  Sex: Male

DRUGS (4)
  1. PROGRAF [Suspect]
     Indication: RHEUMATOID ARTHRITIS
  2. PREDNISOLONE [Suspect]
     Dosage: 7 MG, /D, ORAL
     Route: 048
  3. LORCAM(LORNOXICAM) FORMULATION UNKNOWN [Suspect]
  4. MOBIC [Concomitant]

REACTIONS (3)
  - HAEMATOCHEZIA [None]
  - INTESTINAL ISCHAEMIA [None]
  - PYREXIA [None]
